FAERS Safety Report 13538020 (Version 2)
Quarter: 2018Q1

REPORT INFORMATION
  Report Type: Spontaneous
  Country: GB (occurrence: GB)
  Receive Date: 20170511
  Receipt Date: 20180105
  Transmission Date: 20180508
  Serious: Yes (Hospitalization, Other)
  Sender: FDA-Public Use
  Company Number: GB-ALKEM LABORATORIES LIMITED-GB-ALKEM-2017-00227

PATIENT
  Age: 52 Year
  Sex: Female

DRUGS (1)
  1. CEPHALEXIN. [Suspect]
     Active Substance: CEPHALEXIN
     Indication: URINARY TRACT INFECTION
     Dosage: UNKNOWN

REACTIONS (14)
  - Pyrexia [Unknown]
  - Conjunctival oedema [Unknown]
  - Blister [Unknown]
  - Toxic epidermal necrolysis [Recovered/Resolved]
  - Vanishing bile duct syndrome [Unknown]
  - Epidermal necrosis [Unknown]
  - Rash erythematous [Unknown]
  - Apoptosis [Unknown]
  - Headache [Unknown]
  - Mucosal inflammation [Unknown]
  - Conjunctival hyperaemia [Unknown]
  - Hepatic encephalopathy [Unknown]
  - Sepsis [Unknown]
  - Acute kidney injury [Unknown]
